FAERS Safety Report 14419683 (Version 1)
Quarter: 2018Q1

REPORT INFORMATION
  Report Type: Spontaneous
  Country: US (occurrence: US)
  Receive Date: 20180122
  Receipt Date: 20180122
  Transmission Date: 20180509
  Serious: Yes (Hospitalization, Other)
  Sender: FDA-Public Use
  Company Number: US-IMPAX LABORATORIES, INC-2018-IPXL-00109

PATIENT
  Age: 4 Week
  Sex: Female

DRUGS (4)
  1. PROPRANOLOL HYDROCHLORIDE IR [Suspect]
     Active Substance: PROPRANOLOL HYDROCHLORIDE
     Indication: SUPRAVENTRICULAR TACHYCARDIA
     Dosage: 5 MG/KG, DAILY
     Route: 065
  2. PROPRANOLOL HYDROCHLORIDE IR [Suspect]
     Active Substance: PROPRANOLOL HYDROCHLORIDE
     Indication: PRODUCT USE IN UNAPPROVED INDICATION
     Dosage: OPTIMIZED DOSE, UNK
     Route: 065
  3. FLECAINIDE [Suspect]
     Active Substance: FLECAINIDE
     Indication: SUPRAVENTRICULAR TACHYCARDIA
     Dosage: 7 MG/KG, DAILY
     Route: 065
  4. PROPRANOLOL HYDROCHLORIDE IR [Suspect]
     Active Substance: PROPRANOLOL HYDROCHLORIDE
     Indication: PRODUCT USE ISSUE

REACTIONS (10)
  - Toxicity to various agents [Recovered/Resolved]
  - Supraventricular extrasystoles [Recovered/Resolved]
  - Atrioventricular block first degree [Recovered/Resolved]
  - Drug administered to patient of inappropriate age [Unknown]
  - Bundle branch block [Recovered/Resolved]
  - Lethargy [Unknown]
  - Product use issue [Unknown]
  - Defect conduction intraventricular [Recovered/Resolved]
  - Hypophagia [Unknown]
  - Product use in unapproved indication [Unknown]
